FAERS Safety Report 7953476-7 (Version None)
Quarter: 2011Q4

REPORT INFORMATION
  Report Type: 
  Country: None (occurrence: None)
  Receive Date: 20111202
  Receipt Date: 20111129
  Transmission Date: 20120403
  Serious: No
  Sender: FDA-Public Use
  Company Number: US-PFIZER INC-2011291009

PATIENT
  Sex: Male

DRUGS (2)
  1. AMLODIPINE BESYLATE [Suspect]
     Indication: BLOOD PRESSURE
     Dosage: UNK
  2. LOSARTAN POTASSIUM [Suspect]
     Indication: BLOOD PRESSURE

REACTIONS (3)
  - FEELING ABNORMAL [None]
  - DRUG INEFFECTIVE [None]
  - MYALGIA [None]
